FAERS Safety Report 9246194 (Version 2)
Quarter: 2013Q2

REPORT INFORMATION
  Report Type: Spontaneous
  Country: US (occurrence: US)
  Receive Date: 20130422
  Receipt Date: 20130604
  Transmission Date: 20140414
  Serious: No
  Sender: FDA-Public Use
  Company Number: US-009507513-1304USA009330

PATIENT
  Sex: Female
  Weight: 63.49 kg

DRUGS (1)
  1. AZASITE [Suspect]
     Indication: GLAUCOMA
     Dosage: 1 DROP IN EACH EYE AT BEDTIME
     Route: 047
     Dates: start: 201304

REACTIONS (6)
  - Vision blurred [Recovered/Resolved]
  - Expired drug administered [Unknown]
  - Drug dose omission [Unknown]
  - Product packaging quantity issue [Unknown]
  - Off label use [Unknown]
  - No adverse event [Unknown]
